FAERS Safety Report 4824377-8 (Version None)
Quarter: 2005Q4

REPORT INFORMATION
  Report Type: 
  Country: None (occurrence: None)
  Receive Date: 20051108
  Receipt Date: 20051026
  Transmission Date: 20060501
  Serious: Yes (Hospitalization, Other)
  Sender: FDA-Public Use
  Company Number: USA0510111890

PATIENT
  Age: 47 Year
  Sex: Female
  Weight: 68 kg

DRUGS (4)
  1. HUMALOG [Suspect]
     Indication: DIABETES MELLITUS
     Dosage: 20 U/4 DAY
     Dates: start: 20010101
  2. HUMULIN R [Suspect]
     Indication: DIABETES MELLITUS
  3. METFORMIN [Concomitant]
  4. LANTUS [Concomitant]

REACTIONS (6)
  - BLOOD GLUCOSE INCREASED [None]
  - CEREBROVASCULAR ACCIDENT [None]
  - MALAISE [None]
  - MYOCARDIAL INFARCTION [None]
  - POOR QUALITY DRUG ADMINISTERED [None]
  - TRANSIENT ISCHAEMIC ATTACK [None]
